FAERS Safety Report 16244174 (Version 2)
Quarter: 2019Q2

REPORT INFORMATION
  Report Type: Report from Study
  Country: CN (occurrence: CN)
  Receive Date: 20190426
  Receipt Date: 20190512
  Transmission Date: 20190711
  Serious: Yes (Death, Hospitalization)
  Sender: FDA-Public Use
  Company Number: PHHY2019CN094949

PATIENT
  Age: 75 Year
  Sex: Male

DRUGS (2)
  1. TASIGNA [Suspect]
     Active Substance: NILOTINIB
     Indication: CHRONIC MYELOID LEUKAEMIA
     Dosage: 800 MG, QD
     Route: 048
     Dates: start: 20181102, end: 20181103
  2. GLIVEC [Suspect]
     Active Substance: IMATINIB MESYLATE
     Indication: CHRONIC MYELOID LEUKAEMIA
     Dosage: 400 MG, QD
     Route: 048
     Dates: end: 20181101

REACTIONS (13)
  - Respiratory failure [Fatal]
  - Pericardial effusion [Unknown]
  - Hypotension [Unknown]
  - Oedema [Not Recovered/Not Resolved]
  - Respiratory rate increased [Fatal]
  - Speech disorder [Unknown]
  - Rash [Recovered/Resolved]
  - Oxygen saturation decreased [Fatal]
  - Inappropriate schedule of product administration [Unknown]
  - Heart rate increased [Fatal]
  - Dyspnoea [Unknown]
  - Abdominal discomfort [Not Recovered/Not Resolved]
  - Pulmonary oedema [Unknown]

NARRATIVE: CASE EVENT DATE: 20181102
